FAERS Safety Report 6613800-4 (Version None)
Quarter: 2010Q1

REPORT INFORMATION
  Report Type: 
  Country: None (occurrence: None)
  Receive Date: 20100304
  Receipt Date: 20100107
  Transmission Date: 20100710
  Serious: Yes (Hospitalization, Other)
  Sender: FDA-Public Use
  Company Number: US-TYCO HEALTHCARE/MALLINCKRODT-T201000657

PATIENT
  Sex: Female
  Weight: 90.703 kg

DRUGS (4)
  1. OPTIMARK IN PHARMACY BULK PACK [Suspect]
     Indication: ANGIOGRAM
     Dosage: 40 ML, SINGLE
     Dates: start: 20070926, end: 20070926
  2. COMPAZINE ER [Concomitant]
     Dosage: UNK
     Dates: start: 20070305
  3. DYNACIRC CR [Concomitant]
     Dosage: 10 MG, QD
     Route: 048
  4. LISINOPRIL [Concomitant]
     Dosage: 40 MG, QD
     Route: 048

REACTIONS (28)
  - ANAEMIA [None]
  - ANXIETY [None]
  - AZOTAEMIA [None]
  - CELLULITIS [None]
  - COUGH [None]
  - DEEP VEIN THROMBOSIS [None]
  - DEPRESSION [None]
  - DERMATITIS [None]
  - DIABETIC FOOT [None]
  - DRUG PRESCRIBING ERROR [None]
  - GANGRENE [None]
  - HYPEROSMOLAR STATE [None]
  - HYPOGLYCAEMIA [None]
  - IMPAIRED GASTRIC EMPTYING [None]
  - IMPAIRED HEALING [None]
  - INSOMNIA [None]
  - KERATITIS [None]
  - LEUKOCYTOSIS [None]
  - LOSS OF CONSCIOUSNESS [None]
  - MALAISE [None]
  - NAUSEA [None]
  - NEPHROGENIC SYSTEMIC FIBROSIS [None]
  - OFF LABEL USE [None]
  - OSTEOMYELITIS [None]
  - RASH [None]
  - UPPER RESPIRATORY TRACT INFECTION [None]
  - VOMITING [None]
  - WOUND INFECTION STAPHYLOCOCCAL [None]
